FAERS Safety Report 9626887 (Version 1)
Quarter: 2013Q4

REPORT INFORMATION
  Report Type: Spontaneous
  Country: AU (occurrence: AU)
  Receive Date: 20131016
  Receipt Date: 20131016
  Transmission Date: 20140711
  Serious: Yes (Other)
  Sender: FDA-Public Use
  Company Number: AU-LUNDBECK-DKLU1094345

PATIENT
  Sex: Female

DRUGS (4)
  1. ONFI [Suspect]
     Indication: PRODUCT USED FOR UNKNOWN INDICATION
  2. EPILIM [Suspect]
     Indication: PRODUCT USED FOR UNKNOWN INDICATION
  3. DIAMOX [Suspect]
     Indication: PRODUCT USED FOR UNKNOWN INDICATION
  4. LAMICTAL [Suspect]
     Indication: PRODUCT USED FOR UNKNOWN INDICATION

REACTIONS (4)
  - Gingival bleeding [Unknown]
  - Neutropenia [Unknown]
  - Purpura [Unknown]
  - Thrombocytopenia [Unknown]
